FAERS Safety Report 14453410 (Version 1)
Quarter: 2018Q1

REPORT INFORMATION
  Report Type: Spontaneous
  Country: FR (occurrence: FR)
  Receive Date: 20180129
  Receipt Date: 20180129
  Transmission Date: 20180509
  Serious: Yes (Hospitalization)
  Sender: FDA-Public Use
  Company Number: FR-GLAXOSMITHKLINE-FR2018010711

PATIENT
  Age: 70 Year
  Sex: Female

DRUGS (2)
  1. ZELITREX [Suspect]
     Active Substance: VALACYCLOVIR HYDROCHLORIDE
     Indication: HERPES SIMPLEX
     Dosage: 2 TABLET 500 MG/DAY
     Route: 048
     Dates: start: 20180111, end: 20180113
  2. CEFTRIAXON KABI [Suspect]
     Active Substance: CEFTRIAXONE
     Indication: SEPTIC SHOCK
     Dosage: 2 G, UNK
     Route: 042
     Dates: start: 20180108, end: 20180113

REACTIONS (1)
  - Acute generalised exanthematous pustulosis [Recovered/Resolved]

NARRATIVE: CASE EVENT DATE: 20180113
